FAERS Safety Report 10672585 (Version 3)
Quarter: 2015Q4

REPORT INFORMATION
  Report Type: Spontaneous
  Country: CA (occurrence: CA)
  Receive Date: 20141223
  Receipt Date: 20151215
  Transmission Date: 20160304
  Serious: Yes (Hospitalization, Other)
  Sender: FDA-Public Use
  Company Number: CA-TEVA-526668USA

PATIENT
  Age: 82 Year
  Sex: Male

DRUGS (6)
  1. TREANDA [Suspect]
     Active Substance: BENDAMUSTINE HYDROCHLORIDE
     Indication: NON-HODGKIN^S LYMPHOMA
     Dosage: 150 MILLIGRAM DAILY; CYCLE 1
     Route: 042
     Dates: start: 20141113, end: 20141114
  2. ATENOLOL. [Concomitant]
     Active Substance: ATENOLOL
  3. RITUXIMAB [Suspect]
     Active Substance: RITUXIMAB
     Indication: NON-HODGKIN^S LYMPHOMA
     Route: 065
  4. ASA [Suspect]
     Active Substance: ASPIRIN
  5. KYTRIL [Concomitant]
     Active Substance: GRANISETRON HYDROCHLORIDE
     Dosage: BEFORE TREANDA INFUSION
     Route: 042
  6. DEXAMETHASONE. [Concomitant]
     Active Substance: DEXAMETHASONE
     Dosage: BEFORE TREANDA INFUSION
     Route: 042

REACTIONS (3)
  - Faeces discoloured [Unknown]
  - Laboratory test abnormal [Unknown]
  - Gastrointestinal haemorrhage [Not Recovered/Not Resolved]

NARRATIVE: CASE EVENT DATE: 20141120
